FAERS Safety Report 25121039 (Version 1)
Quarter: 2025Q1

REPORT INFORMATION
  Report Type: Spontaneous
  Country: ES (occurrence: ES)
  Receive Date: 20250326
  Receipt Date: 20250326
  Transmission Date: 20250409
  Serious: Yes (Death, Other)
  Sender: ABBVIE
  Company Number: ES-PFIZER INC-PV202500034728

PATIENT
  Sex: Female

DRUGS (3)
  1. AVIBACTAM SODIUM [Suspect]
     Active Substance: AVIBACTAM SODIUM
     Indication: Klebsiella infection
     Route: 065
  2. AZTREONAM [Suspect]
     Active Substance: AZTREONAM
     Indication: Klebsiella infection
     Route: 065
  3. CEFIDEROCOL [Suspect]
     Active Substance: CEFIDEROCOL
     Indication: Klebsiella infection
     Route: 065

REACTIONS (3)
  - Drug resistance [Fatal]
  - General physical health deterioration [Fatal]
  - Off label use [Fatal]
